FAERS Safety Report 5696117-4 (Version None)
Quarter: 2008Q2

REPORT INFORMATION
  Report Type: 
  Country: None (occurrence: None)
  Receive Date: 20080407
  Receipt Date: 20080402
  Transmission Date: 20081010
  Serious: Yes (Hospitalization)
  Sender: FDA-Public Use
  Company Number: US-ASTRAZENECA-2008UW06607

PATIENT
  Age: 44 Year
  Sex: Male
  Weight: 117.9 kg

DRUGS (2)
  1. METOPROLOL TARTRATE [Suspect]
     Indication: HYPERTENSION
     Route: 048
  2. COUMADIN [Concomitant]

REACTIONS (2)
  - BLOOD PRESSURE ABNORMAL [None]
  - PULMONARY EMBOLISM [None]
